FAERS Safety Report 24457105 (Version 2)
Quarter: 2024Q4

REPORT INFORMATION
  Report Type: Spontaneous
  Country: AT (occurrence: AT)
  Receive Date: 20241018
  Receipt Date: 20241018
  Transmission Date: 20250115
  Serious: Yes (Other)
  Sender: EMD SERONO INC
  Company Number: AT-Merck Healthcare KGaA-2024054369

PATIENT
  Sex: Male

DRUGS (1)
  1. BAVENCIO [Suspect]
     Active Substance: AVELUMAB
     Indication: Product used for unknown indication

REACTIONS (4)
  - Horner^s syndrome [Recovering/Resolving]
  - Eyelid ptosis [Recovering/Resolving]
  - Myocarditis [Recovered/Resolved]
  - Myasthenia gravis [Recovering/Resolving]
